FAERS Safety Report 11791368 (Version 1)
Quarter: 2015Q4

REPORT INFORMATION
  Report Type: Report from Study
  Country: US (occurrence: US)
  Receive Date: 20151201
  Receipt Date: 20151201
  Transmission Date: 20160305
  Serious: Yes (Other)
  Sender: FDA-Public Use
  Company Number: PHEH2014US000511

PATIENT
  Sex: Female
  Weight: 45.35 kg

DRUGS (1)
  1. GILENYA [Suspect]
     Active Substance: FINGOLIMOD HYDROCHLORIDE
     Indication: MULTIPLE SCLEROSIS
     Dosage: 0.5 MG, QD
     Route: 048
     Dates: start: 20120420

REACTIONS (28)
  - Fatigue [Unknown]
  - Cognitive disorder [Unknown]
  - Speech disorder [Unknown]
  - Abasia [Unknown]
  - Head injury [Unknown]
  - Anxiety [Unknown]
  - General physical health deterioration [Unknown]
  - Contusion [Unknown]
  - Scar [Unknown]
  - Stress [Unknown]
  - Mobility decreased [Unknown]
  - Multiple sclerosis [Unknown]
  - Optic neuritis [Unknown]
  - Gait disturbance [Unknown]
  - Balance disorder [Unknown]
  - Face injury [Unknown]
  - Bladder disorder [Unknown]
  - Confusional state [Unknown]
  - Asthenia [Unknown]
  - Functional gastrointestinal disorder [Unknown]
  - Grip strength decreased [Unknown]
  - Fall [Unknown]
  - Insomnia [Unknown]
  - Multiple fractures [Unknown]
  - Muscular weakness [Unknown]
  - Haemorrhage [Unknown]
  - Multiple sclerosis relapse [Unknown]
  - Mood altered [Not Recovered/Not Resolved]
